FAERS Safety Report 4309879-5 (Version None)
Quarter: 2004Q1

REPORT INFORMATION
  Report Type: 
  Country: None (occurrence: None)
  Receive Date: 20040303
  Receipt Date: 20031209
  Transmission Date: 20041129
  Serious: No
  Sender: FDA-Public Use
  Company Number: US-BRISTOL-MYERS SQUIBB COMPANY-12477048

PATIENT
  Age: 13 Year
  Sex: Female

DRUGS (3)
  1. ABILIFY [Suspect]
     Dosage: 5 MG/DAY STARTED ON 02-DEC, 10 MG/DAY FROM 04DEC-09DEC, RESTARTED 5 MG ON 22-DEC.
     Route: 048
     Dates: start: 20031204
  2. STRATTERA [Concomitant]
  3. ZOLOFT [Concomitant]

REACTIONS (1)
  - DYSTONIA [None]
